FAERS Safety Report 7233170-0 (Version None)
Quarter: 2011Q1

REPORT INFORMATION
  Report Type: 
  Country: None (occurrence: None)
  Receive Date: 20110119
  Receipt Date: 20110103
  Transmission Date: 20110831
  Serious: Yes (Hospitalization)
  Sender: FDA-Public Use
  Company Number: A0782981A

PATIENT
  Age: 52 Year
  Sex: Male
  Weight: 115.9 kg

DRUGS (7)
  1. HYDROCHLOROTHIAZIDE [Concomitant]
  2. LOTREL [Concomitant]
  3. ATENOLOL [Concomitant]
  4. AVANDIA [Suspect]
     Dosage: 4MG PER DAY
     Route: 048
     Dates: start: 20000727, end: 20070419
  5. GLYBURIDE [Concomitant]
  6. ASPIRIN [Concomitant]
  7. ADALAT [Concomitant]

REACTIONS (3)
  - CEREBROVASCULAR ACCIDENT [None]
  - ATRIAL FIBRILLATION [None]
  - TRANSIENT ISCHAEMIC ATTACK [None]
